FAERS Safety Report 22005972 (Version 1)
Quarter: 2023Q1

REPORT INFORMATION
  Report Type: Spontaneous
  Country: US (occurrence: US)
  Receive Date: 20230217
  Receipt Date: 20230217
  Transmission Date: 20230418
  Serious: Yes (Death, Hospitalization, Other)
  Sender: FDA-Public Use
  Company Number: US-ADVANZ PHARMA-202301000948

PATIENT

DRUGS (6)
  1. CLONIDINE [Suspect]
     Active Substance: CLONIDINE
     Dosage: ASPIRATION (WITH INGESTION)
     Route: 048
  2. BENZODIAZEPINE [Suspect]
     Active Substance: BENZODIAZEPINE
     Dosage: ASPIRATION (WITH INGESTION)
     Route: 048
  3. METHADONE [Suspect]
     Active Substance: METHADONE HYDROCHLORIDE
     Dosage: ASPIRATION (WITH INGESTION)
     Route: 048
  4. GABAPENTIN [Suspect]
     Active Substance: GABAPENTIN
     Dosage: ASPIRATION (WITH INGESTION)
     Route: 048
  5. HYDROMORPHONE [Suspect]
     Active Substance: HYDROMORPHONE
     Dosage: ASPIRATION (WITH INGESTION)
     Route: 048
  6. BUPIVACAINE [Suspect]
     Active Substance: BUPIVACAINE
     Dosage: ASPIRATION (WITH INGESTION)
     Route: 048

REACTIONS (1)
  - Completed suicide [Fatal]
